FAERS Safety Report 5646654-3 (Version None)
Quarter: 2008Q1

REPORT INFORMATION
  Report Type: 
  Country: None (occurrence: None)
  Receive Date: 20080303
  Receipt Date: 20080303
  Transmission Date: 20080703
  Serious: No
  Sender: FDA-Public Use
  Company Number: None

PATIENT
  Age: 84 Year
  Sex: Male

DRUGS (1)
  1. HEPARIN [Suspect]
     Indication: THROMBOSIS PROPHYLAXIS
     Dosage: 5000UNITS BID SQ
     Route: 058
     Dates: start: 20080123, end: 20080214

REACTIONS (3)
  - CONDITION AGGRAVATED [None]
  - DRUG SPECIFIC ANTIBODY PRESENT [None]
  - THROMBOCYTOPENIA [None]
